FAERS Safety Report 5635669-7 (Version None)
Quarter: 2008Q1

REPORT INFORMATION
  Report Type: 
  Country: None (occurrence: None)
  Receive Date: 20080220
  Receipt Date: 20080204
  Transmission Date: 20080703
  Serious: Yes (Hospitalization)
  Sender: FDA-Public Use
  Company Number: 2007EU002747

PATIENT
  Age: 57 Year
  Sex: Female
  Weight: 53 kg

DRUGS (11)
  1. TACROLIMUS [Suspect]
     Indication: RENAL TRANSPLANT
     Dosage: 11 MG, ORAL; 10.5 MG, ORAL; 3 MG, ORAL; 4.5 MG, ORAL
     Route: 048
     Dates: start: 20051225, end: 20060113
  2. TACROLIMUS [Suspect]
     Indication: RENAL TRANSPLANT
     Dosage: 11 MG, ORAL; 10.5 MG, ORAL; 3 MG, ORAL; 4.5 MG, ORAL
     Route: 048
     Dates: start: 20060113, end: 20060828
  3. TACROLIMUS [Suspect]
     Indication: RENAL TRANSPLANT
     Dosage: 11 MG, ORAL; 10.5 MG, ORAL; 3 MG, ORAL; 4.5 MG, ORAL
     Route: 048
     Dates: start: 20060828, end: 20060929
  4. TACROLIMUS [Suspect]
     Indication: RENAL TRANSPLANT
     Dosage: 11 MG, ORAL; 10.5 MG, ORAL; 3 MG, ORAL; 4.5 MG, ORAL
     Route: 048
     Dates: start: 20061001, end: 20061206
  5. TACROLIMUS [Suspect]
     Indication: RENAL TRANSPLANT
     Dosage: 11 MG, ORAL; 10.5 MG, ORAL; 3 MG, ORAL; 4.5 MG, ORAL
     Route: 048
     Dates: start: 20061207
  6. MYFORTIC [Concomitant]
  7. FUROSEMIDE (FUROSEMIDE SODIUM) [Concomitant]
  8. PREDNISOLONE [Concomitant]
  9. CYNOMEL (LIOTHYRONINE SODIUM) [Concomitant]
  10. ROVALCYTE (VALGANCICLOVIR) [Concomitant]
  11. ARANESP [Concomitant]

REACTIONS (8)
  - ARTHRALGIA [None]
  - BONE PAIN [None]
  - CYTOMEGALOVIRUS INFECTION [None]
  - HYPERKALAEMIA [None]
  - HYPERTENSION [None]
  - LUNG CYST BENIGN [None]
  - LYMPHANGIECTASIA [None]
  - SCHAMBERG'S DISEASE [None]
